FAERS Safety Report 20652485 (Version 37)
Quarter: 2022Q4

REPORT INFORMATION
  Report Type: Spontaneous
  Country: GB (occurrence: GB)
  Receive Date: 20220330
  Receipt Date: 20221228
  Transmission Date: 20230113
  Serious: Yes (Other)
  Sender: FDA-Public Use
  Company Number: GB-EMA-DD-20180521-KSEVHUMANWT-142817

PATIENT
  Age: 44 Year
  Sex: Male

DRUGS (10)
  1. PREGABALIN [Suspect]
     Active Substance: PREGABALIN
     Indication: Product used for unknown indication
     Dosage: DOSAGE FORM: UNSPECIFIED, BETWEEN FEBRUARY 2017 AND MAY 2017
     Route: 065
     Dates: start: 20170201, end: 20170501
  2. PREGABALIN [Suspect]
     Active Substance: PREGABALIN
     Dosage: ABUSE
     Route: 065
     Dates: start: 201702, end: 201705
  3. PREGABALIN [Suspect]
     Active Substance: PREGABALIN
     Dosage: UNK (BETWEEN FEBRUARY 2017 AND MAY 2017)
     Route: 065
     Dates: start: 20170201, end: 20170201
  4. PREGABALIN [Suspect]
     Active Substance: PREGABALIN
     Dosage: DOSAGE FORM: UNSPECIFIED, BETWEEN FEBRUARY 2017 AND MAY 2017
     Dates: start: 20170201, end: 20170501
  5. METHYLPHENIDATE HYDROCHLORIDE [Suspect]
     Active Substance: METHYLPHENIDATE HYDROCHLORIDE
     Indication: Product used for unknown indication
     Dosage: DOSAGE FORM: UNSPECIFIED, BETWEEN FEBRUARY 2017 AND MAY 2017
     Route: 065
     Dates: start: 20170201, end: 20170501
  6. METHYLPHENIDATE HYDROCHLORIDE [Suspect]
     Active Substance: METHYLPHENIDATE HYDROCHLORIDE
     Dosage: UNK (UNSPECIFIED, BETWEEN FEBRUARY 2017 AND MAY 2017); ;
     Route: 065
     Dates: start: 20170201, end: 20170201
  7. METHYLPHENIDATE HYDROCHLORIDE [Suspect]
     Active Substance: METHYLPHENIDATE HYDROCHLORIDE
     Route: 065
     Dates: start: 20170201, end: 20170201
  8. METHYLPHENIDATE HYDROCHLORIDE [Suspect]
     Active Substance: METHYLPHENIDATE HYDROCHLORIDE
     Dosage: UNK ABUSE (DOSAGE FORM: UNSPECIFIED, BETWEEN FEBRUARY 2017 AND MAY 2017)
     Route: 065
     Dates: start: 20170201, end: 20170501
  9. AMPHETAMINE [Concomitant]
     Active Substance: AMPHETAMINE
     Indication: Drug abuse
     Route: 065
  10. COCAINE [Concomitant]
     Active Substance: COCAINE
     Indication: Drug abuse

REACTIONS (4)
  - Loss of consciousness [Recovered/Resolved]
  - Drug abuse [Recovered/Resolved]
  - Drug dependence [Recovered/Resolved]
  - Prescription drug used without a prescription [Recovered/Resolved]
